FAERS Safety Report 22650710 (Version 1)
Quarter: 2023Q2

REPORT INFORMATION
  Report Type: Spontaneous
  Country: CN (occurrence: CN)
  Receive Date: 20230628
  Receipt Date: 20230628
  Transmission Date: 20230721
  Serious: Yes (Life-Threatening)
  Sender: FDA-Public Use
  Company Number: CN-002147023-NVSC2023CN147461

PATIENT
  Age: 57 Year
  Sex: Male

DRUGS (1)
  1. SECUKINUMAB [Suspect]
     Active Substance: SECUKINUMAB
     Indication: Psoriasis
     Dosage: 300 MG
     Route: 058
     Dates: start: 20230627, end: 20230627

REACTIONS (5)
  - Hypersensitivity [Recovering/Resolving]
  - Urinary incontinence [Unknown]
  - Anal incontinence [Unknown]
  - Vision blurred [Unknown]
  - Urticaria [Unknown]

NARRATIVE: CASE EVENT DATE: 20230627
